FAERS Safety Report 8609053-8 (Version None)
Quarter: 2012Q3

REPORT INFORMATION
  Report Type: 
  Country: None (occurrence: None)
  Receive Date: 20120821
  Receipt Date: 19880920
  Transmission Date: 20120928
  Serious: Yes (Hospitalization)
  Sender: FDA-Public Use
  Company Number: US-ROCHE-1101613

PATIENT
  Age: 47 Year
  Sex: Female

DRUGS (2)
  1. ACTIVASE [Suspect]
     Indication: MYOCARDIAL INFARCTION
     Route: 040
  2. ACTIVASE [Suspect]

REACTIONS (10)
  - BLOOD PRESSURE DECREASED [None]
  - ASTHENIA [None]
  - INFUSION SITE ERYTHEMA [None]
  - CHEST PAIN [None]
  - VENTRICULAR EXTRASYSTOLES [None]
  - LETHARGY [None]
  - SWELLING [None]
  - OEDEMA PERIPHERAL [None]
  - SOMNOLENCE [None]
  - NAUSEA [None]
